FAERS Safety Report 7944492-X (Version None)
Quarter: 2011Q4

REPORT INFORMATION
  Report Type: 
  Country: None (occurrence: None)
  Receive Date: 20111114
  Receipt Date: 20110810
  Transmission Date: 20120403
  Serious: No
  Sender: FDA-Public Use
  Company Number: 1000022823

PATIENT
  Age: 58 Year
  Sex: Female
  Weight: 68 kg

DRUGS (13)
  1. ZEGRID (OMEPRAZOLE, SODIUM BICARBONATE) (OMEPRAZOLE, SODIUM BICARBONAT [Concomitant]
  2. TRIQUINOYL (TRIQUINOYL) [Concomitant]
  3. NEXIUM (ESOMEPRAZOLE) (CAPSULES) (ESOMEPRAZOLE) [Concomitant]
  4. SAVELLA [Suspect]
     Indication: FIBROMYALGIA
     Dosage: ORAL
     Route: 048
     Dates: start: 20110101, end: 20110101
  5. LYRICA [Concomitant]
  6. CALCIUM (CALCIUM) (CALCIUM) [Concomitant]
  7. AMBIENT (ZOLPIDEM TARTRATE) (TABLETS) (ZOLPIDEM TARTRATE) [Concomitant]
  8. DEXTROMETHORPHAN (DEXTROMETHORPHAN) (DEXTROMETHORPHAN) [Concomitant]
  9. SYNTHROID (LEVOTHYROXINE SODIUM) (TABLETS) (LEVOTHYROXINE SODIUM) [Concomitant]
  10. CELEXA (CITALOPRAM HYDROBROMIDE) (TABLETS) (CITALOPRAM HYDROBROMIDE) [Concomitant]
  11. ESTRATEST (ESTRATEST HS) (TABLETS) (ESTRATEST HS) [Concomitant]
  12. NEURONTIN [Suspect]
     Indication: FIBROMYALGIA
  13. VITAMIN D (VITAMIN D) (VITAMIN D) [Concomitant]

REACTIONS (5)
  - FATIGUE [None]
  - MALAISE [None]
  - SOMNOLENCE [None]
  - PAIN [None]
  - FRUSTRATION [None]
